FAERS Safety Report 14582060 (Version 1)
Quarter: 2018Q1

REPORT INFORMATION
  Report Type: Spontaneous
  Country: HR (occurrence: HR)
  Receive Date: 20180228
  Receipt Date: 20180228
  Transmission Date: 20180509
  Serious: Yes (Other)
  Sender: FDA-Public Use
  Company Number: HR-TEVA-2018-HR-860400

PATIENT
  Age: 34 Year
  Sex: Female
  Weight: 58 kg

DRUGS (1)
  1. AZIMED [Suspect]
     Active Substance: AZITHROMYCIN
     Indication: SINUSITIS
     Dosage: 500 MG; 1 TADLETA NA DAN
     Route: 048
     Dates: start: 20171201, end: 20171201

REACTIONS (8)
  - Abdominal pain [Unknown]
  - Dizziness [Unknown]
  - Diarrhoea haemorrhagic [Unknown]
  - Diarrhoea [Unknown]
  - Cold sweat [Unknown]
  - Chills [Unknown]
  - Nausea [Unknown]
  - Malaise [Unknown]

NARRATIVE: CASE EVENT DATE: 20171201
